FAERS Safety Report 9059604 (Version 1)
Quarter: 2013Q1

REPORT INFORMATION
  Report Type: Spontaneous
  Country: US (occurrence: None)
  Receive Date: 20130206
  Receipt Date: 20130206
  Transmission Date: 20140127
  Serious: Yes (Disabling, Other)
  Sender: FDA-Public Use
  Company Number: None

PATIENT
  Age: 66 Year
  Sex: Female
  Weight: 70 kg

DRUGS (1)
  1. ACETIC ACID, GLACIAL [Suspect]
     Dosage: SWABED TO RECTAL AREA  ONCE  TOP
     Route: 061
     Dates: start: 20120928, end: 20120928

REACTIONS (3)
  - Skin exfoliation [None]
  - Drug label confusion [None]
  - Skin graft [None]
